FAERS Safety Report 7065716-X (Version None)
Quarter: 2010Q4

REPORT INFORMATION
  Report Type: 
  Country: None (occurrence: None)
  Receive Date: 20101027
  Receipt Date: 20101018
  Transmission Date: 20110411
  Serious: Yes (Other)
  Sender: FDA-Public Use
  Company Number: US-ASTRAZENECA-2009SE15140

PATIENT
  Age: 39 Year
  Sex: Female
  Weight: 65.8 kg

DRUGS (7)
  1. SEROQUEL [Suspect]
     Indication: MOOD SWINGS
     Route: 048
     Dates: start: 20020101, end: 20070101
  2. SEROQUEL [Suspect]
     Route: 048
     Dates: start: 20040101, end: 20070101
  3. PARNATE [Concomitant]
  4. KLONOPIN [Concomitant]
  5. PANACID [Concomitant]
  6. DALMANE [Concomitant]
  7. SENOKOT [Concomitant]

REACTIONS (3)
  - CATARACT [None]
  - EYE DISORDER [None]
  - WEIGHT INCREASED [None]
